FAERS Safety Report 9087640 (Version 2)
Quarter: 2013Q1

REPORT INFORMATION
  Report Type: Spontaneous
  Country: IE (occurrence: IE)
  Receive Date: 20130131
  Receipt Date: 20130227
  Transmission Date: 20140127
  Serious: Yes (Other)
  Sender: FDA-Public Use
  Company Number: IE-PFIZER INC-2013033323

PATIENT
  Age: 87 Year
  Sex: Male

DRUGS (1)
  1. INSPRA [Suspect]
     Dosage: 50 MG, 1X/DAY

REACTIONS (1)
  - Cerebrovascular accident [Unknown]
